FAERS Safety Report 9790709 (Version 1)
Quarter: 2013Q4

REPORT INFORMATION
  Report Type: Spontaneous
  Country: FR (occurrence: FR)
  Receive Date: 20131231
  Receipt Date: 20131231
  Transmission Date: 20140711
  Serious: Yes (Hospitalization)
  Sender: FDA-Public Use
  Company Number: FR-PFIZER INC-2013373708

PATIENT
  Age: 80 Year
  Sex: Female

DRUGS (8)
  1. EUPANTOL [Suspect]
     Dosage: UNK
     Route: 048
     Dates: start: 20130802
  2. RULID [Suspect]
     Dosage: UNK
     Route: 048
     Dates: start: 20130809, end: 20130821
  3. CEFTRIAXONE [Suspect]
     Dosage: UNK
     Route: 042
     Dates: start: 20130808, end: 20130820
  4. CALCIPARINE [Suspect]
     Dosage: UNK
     Route: 058
     Dates: start: 20130814, end: 20130828
  5. IODINE [Suspect]
     Dosage: UNK
     Route: 042
     Dates: start: 20130822
  6. MOPRAL [Concomitant]
  7. KARDEGIC [Concomitant]
  8. LERCAN [Concomitant]

REACTIONS (3)
  - Eosinophilia [Unknown]
  - Rash [Unknown]
  - Pyrexia [Unknown]
